FAERS Safety Report 8763102 (Version 2)
Quarter: 2012Q4

REPORT INFORMATION
  Report Type: 
  Country: JP (occurrence: JP)
  Receive Date: 20120831
  Receipt Date: 20120910
  Transmission Date: 20130627
  Serious: Yes (Other)
  Sender: FDA-Public Use
  Company Number: JP-EISAI INC-E2090-02269-SPO-JP

PATIENT
  Age: 71 Year
  Sex: Male

DRUGS (10)
  1. EXCEGRAN [Suspect]
     Indication: MOOD VARIABLE
     Dosage: 200 mg/day
     Route: 048
     Dates: start: 20120403, end: 20120409
  2. EXCEGRAN [Suspect]
     Indication: IRASCIBLE
     Dosage: 400 mg/day
     Route: 048
     Dates: start: 20120410, end: 20120625
  3. EXCEGRAN [Suspect]
     Dosage: 300 mg/day
     Route: 048
     Dates: start: 20120626, end: 20120816
  4. CARBAMAZEPINE [Concomitant]
     Indication: MOOD VARIABLE
     Dosage: 200 mg/day
     Route: 048
     Dates: start: 20120403, end: 20120409
  5. CARBAMAZEPINE [Concomitant]
     Indication: IRASCIBLE
  6. CARBAMAZEPINE [Concomitant]
     Indication: AGGRESSION
  7. SODIUM VALPROATE [Concomitant]
     Indication: MOOD VARIABLE
     Dosage: 900 mg/day
     Route: 048
     Dates: start: 20120403, end: 20120521
  8. SODIUM VALPROATE [Concomitant]
     Indication: IRASCIBLE
     Dosage: 800 mg/day
     Route: 048
     Dates: start: 20120522, end: 20120716
  9. SODIUM VALPROATE [Concomitant]
     Indication: AGGRESSION
     Dosage: 700 mg/day
     Route: 048
     Dates: start: 20120717
  10. RISPERIDONE [Concomitant]
     Route: 048

REACTIONS (1)
  - Platelet count decreased [Not Recovered/Not Resolved]
